FAERS Safety Report 7529838-9 (Version None)
Quarter: 2011Q2

REPORT INFORMATION
  Report Type: 
  Country: None (occurrence: None)
  Receive Date: 20110607
  Receipt Date: 20110603
  Transmission Date: 20111010
  Serious: No
  Sender: FDA-Public Use
  Company Number: US-JNJFOC-20110408837

PATIENT
  Age: 29 Year
  Sex: Female

DRUGS (7)
  1. PALIPERIDONE [Suspect]
     Indication: BIPOLAR DISORDER
     Route: 048
  2. HALOPERIDOL [Suspect]
     Route: 065
  3. VALPROATE SODIUM [Suspect]
     Route: 065
  4. LAMOTRIGINE [Suspect]
     Indication: BIPOLAR DISORDER
     Route: 065
  5. HALOPERIDOL [Suspect]
     Indication: BIPOLAR DISORDER
     Route: 065
  6. VALPROATE SODIUM [Suspect]
     Indication: BIPOLAR DISORDER
     Route: 065
  7. CLOZAPINE [Suspect]
     Indication: BIPOLAR DISORDER
     Route: 065

REACTIONS (1)
  - DRUG INEFFECTIVE [None]
